FAERS Safety Report 13056227 (Version 1)
Quarter: 2016Q4

REPORT INFORMATION
  Report Type: Spontaneous
  Country: US (occurrence: US)
  Receive Date: 20161222
  Receipt Date: 20161222
  Transmission Date: 20170207
  Serious: Yes (Hospitalization)
  Sender: FDA-Public Use
  Company Number: US-NAPPMUNDI-USA-2016-0133782

PATIENT
  Age: 58 Year
  Sex: Female
  Weight: 98.5 kg

DRUGS (20)
  1. CELECOXIB. [Concomitant]
     Active Substance: CELECOXIB
     Indication: PAIN
     Dosage: 200 MG, DAILY
     Route: 048
  2. SENNA                              /00142201/ [Concomitant]
     Active Substance: SENNA LEAF
     Indication: CONSTIPATION
     Dosage: 2 X 8.6 MG, BID
     Route: 048
     Dates: start: 20160725
  3. MIRALAX [Suspect]
     Active Substance: POLYETHYLENE GLYCOL 3350
     Indication: CONSTIPATION
     Dosage: 17 G, DAILY AS NEEDED
     Route: 048
     Dates: start: 20160721
  4. KLONOPIN [Suspect]
     Active Substance: CLONAZEPAM
     Dosage: 10 MG, DAILY
     Route: 048
     Dates: start: 20151215, end: 20160731
  5. DILAUDID [Suspect]
     Active Substance: HYDROMORPHONE HYDROCHLORIDE
     Indication: PAIN
     Dosage: 2 MG, Q4- 6H PRN
     Route: 048
     Dates: start: 2010
  6. KLONOPIN [Suspect]
     Active Substance: CLONAZEPAM
     Indication: ANXIETY
     Dosage: .5 UNK, UNK
     Route: 048
     Dates: start: 20160831
  7. FLONASE [Concomitant]
     Active Substance: FLUTICASONE PROPIONATE
     Indication: RHINITIS ALLERGIC
     Dosage: 50 MCG, UNK
     Route: 045
  8. LOSARTAN. [Concomitant]
     Active Substance: LOSARTAN
     Indication: HYPERTENSION
     Dosage: 50 MG, DAILY
     Route: 048
     Dates: end: 20160801
  9. NOSTRIL                            /00116302/ [Concomitant]
     Indication: RHINITIS ALLERGIC
     Dosage: UNK UNK, BID
     Route: 065
  10. HYDROCHLOROTHIAZIDE. [Concomitant]
     Active Substance: HYDROCHLOROTHIAZIDE
     Indication: HYPERTENSION
     Dosage: 25 MG, DAILY
     Route: 048
     Dates: end: 20160801
  11. PREGABALIN. [Concomitant]
     Active Substance: PREGABALIN
     Indication: PAIN
     Dosage: 3 X 100 MG, DAILY
     Route: 048
  12. PYRIDOXINE [Concomitant]
     Active Substance: PYRIDOXINE
     Indication: PRODUCT USED FOR UNKNOWN INDICATION
     Dosage: 5 MG, DAILY
     Route: 048
  13. MACROBID [Concomitant]
     Active Substance: NITROFURANTOIN\NITROFURANTOIN MONOHYDRATE
     Indication: URINARY TRACT INFECTION
     Dosage: 100 MG, BID
     Route: 048
     Dates: start: 20160722, end: 20160729
  14. FENTANYL. [Suspect]
     Active Substance: FENTANYL
     Indication: PAIN
     Dosage: 12 MCG/HR, 872 HRS
     Route: 062
     Dates: start: 201507, end: 20160801
  15. CETIRIZINE [Concomitant]
     Active Substance: CETIRIZINE HYDROCHLORIDE
     Indication: RHINITIS ALLERGIC
     Dosage: 10 MG, DAILY
     Route: 048
  16. PANTOPRAZOLE [Concomitant]
     Active Substance: PANTOPRAZOLE SODIUM
     Indication: OESOPHAGITIS
     Dosage: 40 MG, DAILY
     Route: 048
  17. ONDANSETRON                        /00955302/ [Concomitant]
     Indication: PROPHYLAXIS OF NAUSEA AND VOMITING
     Dosage: 8 MG, Q8H PRN
     Route: 048
     Dates: start: 20160719
  18. FERROUS SULFATE. [Concomitant]
     Active Substance: FERROUS SULFATE
     Indication: ANAEMIA
     Dosage: 325 MG, DAILY
     Route: 048
  19. COMPAZINE                          /00013302/ [Concomitant]
     Active Substance: PROCHLORPERAZINE EDISYLATE
     Indication: PROPHYLAXIS OF NAUSEA AND VOMITING
     Dosage: 10 MG, Q6H PRN
     Route: 048
     Dates: start: 20160719
  20. CARAFATE [Concomitant]
     Active Substance: SUCRALFATE
     Indication: HERNIA
     Dosage: 100 MG/ML, Q6H PRN
     Route: 048

REACTIONS (1)
  - Hypotension [Recovered/Resolved]
